FAERS Safety Report 9379016 (Version 1)
Quarter: 2013Q3

REPORT INFORMATION
  Report Type: Spontaneous
  Country: US (occurrence: US)
  Receive Date: 20130702
  Receipt Date: 20130702
  Transmission Date: 20140515
  Serious: No
  Sender: FDA-Public Use
  Company Number: US-BRISTOL-MYERS SQUIBB COMPANY-18846055

PATIENT
  Sex: Male

DRUGS (1)
  1. YERVOY [Suspect]
     Dates: start: 20130409

REACTIONS (2)
  - Rash [Unknown]
  - Pruritus [Unknown]
